FAERS Safety Report 24188382 (Version 1)
Quarter: 2024Q3

REPORT INFORMATION
  Report Type: Spontaneous
  Country: US (occurrence: US)
  Receive Date: 20240808
  Receipt Date: 20240808
  Transmission Date: 20241017
  Serious: No
  Sender: OTSUKA
  Company Number: US-OTSUKA-2023_027231

PATIENT
  Sex: Female

DRUGS (1)
  1. ABILIFY [Suspect]
     Active Substance: ARIPIPRAZOLE
     Indication: Mood swings
     Dosage: LOWEST DOSE
     Route: 065

REACTIONS (5)
  - Peripheral swelling [Unknown]
  - Swelling face [Unknown]
  - Oropharyngeal discomfort [Unknown]
  - Drug hypersensitivity [Unknown]
  - Drug effective for unapproved indication [Unknown]
